FAERS Safety Report 17756574 (Version 1)
Quarter: 2020Q2

REPORT INFORMATION
  Report Type: Not Available
  Country: US (occurrence: US)
  Receive Date: 20200507
  Receipt Date: 20200507
  Transmission Date: 20200714
  Serious: No
  Sender: FDA-Public Use
  Company Number: US-NEUROCRINE BIOSCIENCES INC.-2020NBI01408

PATIENT
  Age: 72 Year
  Sex: Female

DRUGS (2)
  1. INGREZZA [Suspect]
     Active Substance: VALBENAZINE
     Indication: BIPOLAR DISORDER
  2. INGREZZA [Suspect]
     Active Substance: VALBENAZINE
     Indication: SCHIZOPHRENIA
     Route: 048
     Dates: start: 20200406

REACTIONS (3)
  - Aggression [Not Recovered/Not Resolved]
  - Off label use [Unknown]
  - Hallucination [Not Recovered/Not Resolved]

NARRATIVE: CASE EVENT DATE: 20200418
